FAERS Safety Report 6275627-5 (Version None)
Quarter: 2009Q3

REPORT INFORMATION
  Report Type: 
  Country: None (occurrence: None)
  Receive Date: 20090721
  Receipt Date: 20090714
  Transmission Date: 20100115
  Serious: Yes (Hospitalization, Other)
  Sender: FDA-Public Use
  Company Number: US-B.I. PHARMACEUTICALS,INC./RIDGEFIELD-2009-BP-04999BP

PATIENT
  Sex: Male

DRUGS (19)
  1. FLOMAX [Suspect]
     Indication: POLLAKIURIA
     Dosage: 0.4 MG
     Route: 048
     Dates: start: 20081227, end: 20081231
  2. FOSAMAX [Concomitant]
  3. OXYBUTYNIN CHLORIDE [Concomitant]
     Dosage: 10 MG
  4. PYRIDOSTIGMINE BROMIDE [Concomitant]
  5. PREDNISONE TAB [Concomitant]
  6. AZASAN [Concomitant]
  7. ENTERIC ASPIRIN [Concomitant]
  8. CALCIUM [Concomitant]
  9. FISH OIL [Concomitant]
  10. METOPROLOL SUCCINATE [Concomitant]
  11. LEVOTHYROXINE SODIUM [Concomitant]
  12. GLUCOSAMINE [Concomitant]
  13. CHONDROITIN [Concomitant]
  14. FUROSEMIDE [Concomitant]
  15. IRON SUPPLEMENT [Concomitant]
  16. CRESTOR [Concomitant]
  17. MULTIVITAMIN SUPPLEMENT [Concomitant]
  18. VITAMIN D [Concomitant]
  19. OMEPRAZOLE [Concomitant]

REACTIONS (4)
  - DRUG INEFFECTIVE [None]
  - GASTRIC NEOPLASM [None]
  - GASTRIC ULCER [None]
  - ULCER [None]
